FAERS Safety Report 6439146-5 (Version None)
Quarter: 2009Q4

REPORT INFORMATION
  Report Type: 
  Country: None (occurrence: None)
  Receive Date: 20091113
  Receipt Date: 20091109
  Transmission Date: 20100525
  Serious: Yes (Hospitalization)
  Sender: FDA-Public Use
  Company Number: US-BRISTOL-MYERS SQUIBB COMPANY-14850952

PATIENT
  Sex: Female

DRUGS (1)
  1. AVAPRO [Suspect]
     Indication: HYPERTENSION
     Dosage: 1DF-150 UNITS NOT MENTIONED
     Dates: start: 20091022, end: 20091023

REACTIONS (7)
  - CHEST PAIN [None]
  - FATIGUE [None]
  - HEADACHE [None]
  - HEART RATE DECREASED [None]
  - HYPOTENSION [None]
  - LETHARGY [None]
  - NAUSEA [None]
